FAERS Safety Report 19642790 (Version 11)
Quarter: 2022Q2

REPORT INFORMATION
  Report Type: Spontaneous
  Country: US (occurrence: US)
  Receive Date: 20210730
  Receipt Date: 20220512
  Transmission Date: 20220721
  Serious: Yes (Life-Threatening, Hospitalization, Disabling, Other)
  Sender: FDA-Public Use
  Company Number: US-PFIZER INC-202100932320

PATIENT
  Age: 40 Year
  Sex: Female
  Weight: 45.36 kg

DRUGS (12)
  1. DILANTIN [Suspect]
     Active Substance: PHENYTOIN
     Indication: Generalised tonic-clonic seizure
     Dosage: AT BEDTIME
     Route: 048
  2. DILANTIN [Suspect]
     Active Substance: PHENYTOIN
     Dosage: 500 MG, DAILY
     Dates: start: 2001, end: 2012
  3. DILANTIN [Suspect]
     Active Substance: PHENYTOIN
     Dosage: UNK
     Dates: start: 2001, end: 2011
  4. DILANTIN [Suspect]
     Active Substance: PHENYTOIN
     Dosage: UNK
     Dates: end: 2013
  5. DILANTIN [Suspect]
     Active Substance: PHENYTOIN
     Dosage: 500 MG, 2X/DAY
  6. DILANTIN [Suspect]
     Active Substance: PHENYTOIN
     Dosage: 300 MG, 1X/DAY
  7. ABILIFY [Concomitant]
     Active Substance: ARIPIPRAZOLE
     Dosage: 10 MG
  8. CELECOXIB [Concomitant]
     Active Substance: CELECOXIB
     Dosage: UNK
     Dates: start: 2001, end: 2014
  9. SPIRONOLACTONE [Concomitant]
     Active Substance: SPIRONOLACTONE
     Dosage: 25 MG
  10. SYNTHROID [Concomitant]
     Active Substance: LEVOTHYROXINE SODIUM
     Indication: Hypothyroidism
     Dosage: UNK
  11. XANAX [Concomitant]
     Active Substance: ALPRAZOLAM
     Dosage: 4 TIMES A DAY WHEN NEEDED
  12. ZOLOFT [Concomitant]
     Active Substance: SERTRALINE HYDROCHLORIDE
     Indication: Depression
     Dosage: 100 MG, 3X/DAY

REACTIONS (37)
  - Sepsis [Unknown]
  - Pneumonia viral [Unknown]
  - Encephalopathy [Unknown]
  - Confusional state [Unknown]
  - Respiratory distress [Unknown]
  - Cerebellar atrophy [Unknown]
  - Toxicity to various agents [Unknown]
  - Nystagmus [Unknown]
  - Hyperthyroidism [Unknown]
  - Hip fracture [Unknown]
  - Jaw fracture [Unknown]
  - Fall [Unknown]
  - Cerebral atrophy [Not Recovered/Not Resolved]
  - Hypothyroidism [Unknown]
  - Drug level below therapeutic [Unknown]
  - Impaired work ability [Unknown]
  - Asthenia [Unknown]
  - Muscular weakness [Unknown]
  - Feeling abnormal [Unknown]
  - Balance disorder [Unknown]
  - Coordination abnormal [Unknown]
  - Feeling drunk [Unknown]
  - Gait disturbance [Unknown]
  - Dysgraphia [Unknown]
  - Posture abnormal [Unknown]
  - Drug level above therapeutic [Unknown]
  - Mental status changes [Unknown]
  - Diplopia [Unknown]
  - Dysarthria [Unknown]
  - Gait disturbance [Unknown]
  - Tremor [Unknown]
  - Muscle spasms [Unknown]
  - Hypoaesthesia [Unknown]
  - Blood disorder [Unknown]
  - Tremor [Not Recovered/Not Resolved]
  - Intentional product misuse [Unknown]
  - Prescribed overdose [Unknown]

NARRATIVE: CASE EVENT DATE: 20070101
